FAERS Safety Report 5979907-X (Version None)
Quarter: 2008Q4

REPORT INFORMATION
  Report Type: 
  Country: None (occurrence: None)
  Receive Date: 20081126
  Receipt Date: 20081114
  Transmission Date: 20090506
  Serious: Yes (Hospitalization)
  Sender: FDA-Public Use
  Company Number: THYR-1000100

PATIENT
  Age: 64 Year
  Sex: Female

DRUGS (3)
  1. THYROGEN [Suspect]
     Indication: DIAGNOSTIC PROCEDURE
     Dosage: INTRAMUSCULAR
     Route: 030
     Dates: start: 20081023, end: 20081023
  2. METFORMIN HCL [Concomitant]
  3. EZETIMIBE [Concomitant]

REACTIONS (5)
  - CHOLESTEATOMA [None]
  - EXTERNAL EAR DISORDER [None]
  - OTITIS MEDIA [None]
  - OTORRHOEA [None]
  - VIITH NERVE PARALYSIS [None]
